FAERS Safety Report 6400528-9 (Version None)
Quarter: 2009Q4

REPORT INFORMATION
  Report Type: 
  Country: None (occurrence: None)
  Receive Date: 20091014
  Receipt Date: 20091002
  Transmission Date: 20100525
  Serious: Yes (Hospitalization, Other)
  Sender: FDA-Public Use
  Company Number: BR-PFIZER INC-2009199608

PATIENT
  Age: 36 Year

DRUGS (13)
  1. GEODON [Suspect]
     Indication: SCHIZOPHRENIA
     Dosage: 80 MG, 1X/DAY
     Route: 048
     Dates: start: 20070404, end: 20070801
  2. GEODON [Suspect]
     Dosage: 80 MG, 2X/DAY
     Route: 048
     Dates: start: 20090422
  3. RISPERIDONE [Suspect]
     Indication: PSYCHOTIC DISORDER
     Dosage: UNK
     Route: 048
     Dates: end: 20090402
  4. HALOPERIDOL [Concomitant]
     Dosage: UNK
     Route: 048
     Dates: end: 20080601
  5. CARBAMAZEPINE [Concomitant]
     Dosage: UNK
     Route: 048
  6. AMITRIPTYLINE [Concomitant]
     Dosage: UNK
     Route: 048
     Dates: end: 20080601
  7. AMITRIPTYLINE [Concomitant]
     Dosage: UNK
     Dates: start: 20090402
  8. HALOPERIDOL DECANOATE [Concomitant]
     Dosage: UNK
     Route: 030
     Dates: start: 20080601
  9. CARBOLITIUM [Concomitant]
     Dosage: UNK
     Route: 048
     Dates: start: 20080601
  10. STABLON [Concomitant]
     Dosage: UNK
     Dates: start: 20090402
  11. CLONAZEPAM [Concomitant]
     Dosage: UNK
     Dates: start: 20090402
  12. PALIPERIDONE [Concomitant]
     Dosage: UNK
  13. ABILIFY [Concomitant]

REACTIONS (4)
  - HEPATIC ENZYME INCREASED [None]
  - MUSCLE RIGIDITY [None]
  - POISONING [None]
  - SEDATION [None]
